FAERS Safety Report 5358281-6 (Version None)
Quarter: 2007Q2

REPORT INFORMATION
  Report Type: 
  Country: None (occurrence: None)
  Receive Date: 20070530
  Receipt Date: 20061128
  Transmission Date: 20071010
  Serious: Yes (Other)
  Sender: FDA-Public Use
  Company Number: US200603000939

PATIENT
  Age: 30 Year
  Sex: Female
  Weight: 105.2 kg

DRUGS (7)
  1. ZYPREXA [Suspect]
     Indication: SCHIZOPHRENIA
     Dosage: 40 MG, 15 MG, 20 MG
     Dates: start: 19930101, end: 20020101
  2. ZYPREXA [Suspect]
     Indication: SCHIZOPHRENIA
     Dosage: 40 MG, 15 MG, 20 MG
     Dates: start: 20020101
  3. ZYPREXA [Suspect]
     Indication: SCHIZOPHRENIA
     Dosage: 40 MG, 15 MG, 20 MG
     Dates: start: 20020101
  4. CARBAMAZEPINE [Concomitant]
  5. LITHIUM CARBONATE [Concomitant]
  6. BUPROPION HCL [Concomitant]
  7. PROZAC [Concomitant]

REACTIONS (10)
  - BLOOD CHOLESTEROL ABNORMAL [None]
  - CHOLELITHIASIS [None]
  - DIABETES MELLITUS NON-INSULIN-DEPENDENT [None]
  - HYPERTENSION [None]
  - HYPOGLYCAEMIA [None]
  - METABOLIC DISORDER [None]
  - OBESITY [None]
  - POLYURIA [None]
  - PRESCRIBED OVERDOSE [None]
  - WEIGHT INCREASED [None]
